FAERS Safety Report 7304184-7 (Version None)
Quarter: 2011Q1

REPORT INFORMATION
  Report Type: 
  Country: None (occurrence: None)
  Receive Date: 20110221
  Receipt Date: 20110211
  Transmission Date: 20110831
  Serious: Yes (Other)
  Sender: FDA-Public Use
  Company Number: ZA-BAYER-201042259GPV

PATIENT
  Sex: Female

DRUGS (1)
  1. MIRENA [Suspect]
     Indication: CONTRACEPTION
     Dosage: 20 ?G (DAILY DOSE), CONT, INTRA-UTERINE
     Route: 015
     Dates: start: 20071101, end: 20101011

REACTIONS (3)
  - ECTOPIC PREGNANCY WITH INTRAUTERINE DEVICE [None]
  - BREAST TENDERNESS [None]
  - VAGINAL HAEMORRHAGE [None]
